FAERS Safety Report 17085453 (Version 1)
Quarter: 2019Q4

REPORT INFORMATION
  Report Type: Spontaneous
  Country: US (occurrence: US)
  Receive Date: 20191127
  Receipt Date: 20191127
  Transmission Date: 20200122
  Serious: No
  Sender: FDA-Public Use
  Company Number: None

PATIENT
  Age: 45 Year
  Sex: Male

DRUGS (1)
  1. PIPERACILLIN SODIUM TAZOBACTAM [Suspect]
     Active Substance: PIPERACILLIN SODIUM\TAZOBACTAM SODIUM
     Indication: SOFT TISSUE INFECTION
     Route: 042
     Dates: start: 20191015, end: 20191108

REACTIONS (3)
  - Chills [None]
  - Pain [None]
  - Headache [None]

NARRATIVE: CASE EVENT DATE: 20191108
